APPROVED DRUG PRODUCT: CLOZAPINE
Active Ingredient: CLOZAPINE
Strength: 100MG
Dosage Form/Route: TABLET, ORALLY DISINTEGRATING;ORAL
Application: A090308 | Product #002 | TE Code: AB
Applicant: BARR LABORATORIES INC
Approved: Nov 25, 2015 | RLD: No | RS: Yes | Type: RX